FAERS Safety Report 6529355-9 (Version None)
Quarter: 2010Q1

REPORT INFORMATION
  Report Type: 
  Country: None (occurrence: None)
  Receive Date: 20100107
  Receipt Date: 20091229
  Transmission Date: 20100710
  Serious: Yes (Other)
  Sender: FDA-Public Use
  Company Number: US-JNJFOC-20091207775

PATIENT
  Age: 12 Year
  Sex: Male
  Weight: 49.9 kg

DRUGS (1)
  1. CONCERTA [Suspect]
     Indication: ATTENTION DEFICIT/HYPERACTIVITY DISORDER

REACTIONS (7)
  - AGGRESSION [None]
  - ANGER [None]
  - CATATONIA [None]
  - FRUSTRATION [None]
  - INCORRECT DRUG ADMINISTRATION DURATION [None]
  - SELF-INJURIOUS IDEATION [None]
  - SUICIDE ATTEMPT [None]
